FAERS Safety Report 18025181 (Version 3)
Quarter: 2021Q1

REPORT INFORMATION
  Report Type: Spontaneous
  Country: US (occurrence: US)
  Receive Date: 20200715
  Receipt Date: 20210330
  Transmission Date: 20210419
  Serious: Yes (Hospitalization, Other)
  Sender: FDA-Public Use
  Company Number: US-ASTRAZENECA-2020SE86339

PATIENT
  Sex: Female
  Weight: 65.8 kg

DRUGS (63)
  1. NEXIUM 24HR [Suspect]
     Active Substance: ESOMEPRAZOLE MAGNESIUM
     Indication: GASTROOESOPHAGEAL REFLUX DISEASE
     Dosage: TWICE DAILY
     Route: 048
     Dates: start: 2008
  2. MELOXICAM. [Concomitant]
     Active Substance: MELOXICAM
     Indication: ANALGESIC INTERVENTION SUPPORTIVE THERAPY
     Dosage: 7.5 MG
     Dates: start: 2017
  3. PRAVASTATIN. [Concomitant]
     Active Substance: PRAVASTATIN
     Indication: BLOOD TRIGLYCERIDES ABNORMAL
     Dosage: 80 MG
     Dates: start: 2014, end: 2018
  4. AMOXICILLIN. [Concomitant]
     Active Substance: AMOXICILLIN
     Indication: ANTIBIOTIC THERAPY
     Dosage: 500 MG
     Dates: start: 2017, end: 2018
  5. TERCONAZOLE. [Concomitant]
     Active Substance: TERCONAZOLE
  6. PROMETHAZINE [Concomitant]
     Active Substance: PROMETHAZINE HYDROCHLORIDE
  7. PULMICORT TURBUHALER [Concomitant]
     Active Substance: BUDESONIDE
  8. ALLOPURINOL. [Concomitant]
     Active Substance: ALLOPURINOL
     Indication: BLOOD URIC ACID ABNORMAL
     Dosage: 100 MG
     Dates: start: 2018
  9. AMITRIPTYLINE [Concomitant]
     Active Substance: AMITRIPTYLINE
     Indication: ANTIDEPRESSANT THERAPY
     Dosage: 25 MG
     Dates: start: 2016, end: 2017
  10. AZITHROMYCIN ANHYDROUS. [Concomitant]
     Active Substance: AZITHROMYCIN ANHYDROUS
     Indication: ANTIBIOTIC THERAPY
     Dosage: 250 MG
     Dates: start: 2017
  11. ZANTAC [Concomitant]
     Active Substance: RANITIDINE HYDROCHLORIDE
     Dates: start: 2016, end: 2018
  12. PEPCID AC [Concomitant]
     Active Substance: FAMOTIDINE
     Dates: start: 2016, end: 2018
  13. ROLAIDS [Concomitant]
     Active Substance: CALCIUM CARBONATE\MAGNESIUM HYDROXIDE
     Dosage: TWICE A DAY
     Dates: start: 1992, end: 1997
  14. OXYCONTIN [Concomitant]
     Active Substance: OXYCODONE HYDROCHLORIDE
  15. CYCLOBENZAPRINE. [Concomitant]
     Active Substance: CYCLOBENZAPRINE
  16. NITROFURANTOIN. [Concomitant]
     Active Substance: NITROFURANTOIN
  17. OMEPRAZOLE. [Suspect]
     Active Substance: OMEPRAZOLE
     Indication: GASTROOESOPHAGEAL REFLUX DISEASE
     Dosage: GENERIC
     Route: 065
     Dates: start: 2014, end: 2015
  18. TRIAMTERENE. [Concomitant]
     Active Substance: TRIAMTERENE
     Indication: FLUID RETENTION
     Dosage: 37.5 MG
     Dates: start: 2016
  19. TRIAMTERENE. [Concomitant]
     Active Substance: TRIAMTERENE
     Indication: HYPERTENSION
     Dosage: 37.5 MG
     Dates: start: 2016
  20. MULTIVITAMINS [Concomitant]
     Active Substance: VITAMINS
     Indication: SUPPLEMENTATION THERAPY
     Dates: start: 2020
  21. ZANTAC [Concomitant]
     Active Substance: RANITIDINE HYDROCHLORIDE
     Dates: start: 201805, end: 201909
  22. TAGAMET HB [Concomitant]
     Active Substance: CIMETIDINE
     Dates: start: 2010, end: 2018
  23. METHYLPREDNISOLONE. [Concomitant]
     Active Substance: METHYLPREDNISOLONE
  24. GABAPENTIN. [Concomitant]
     Active Substance: GABAPENTIN
  25. NARCAN [Concomitant]
     Active Substance: NALOXONE HYDROCHLORIDE
  26. TROSPIUM [Concomitant]
     Active Substance: TROSPIUM
  27. MILK OF MAGNESIA [Concomitant]
     Active Substance: MAGNESIUM HYDROXIDE
     Dosage: TWICE A DAY
     Dates: start: 2012, end: 2016
  28. ROPINIROLE. [Concomitant]
     Active Substance: ROPINIROLE
  29. TIZANIDINE. [Concomitant]
     Active Substance: TIZANIDINE
  30. NYSTATIN. [Concomitant]
     Active Substance: NYSTATIN
  31. PANTOPRAZOLE [Suspect]
     Active Substance: PANTOPRAZOLE
     Indication: GASTROOESOPHAGEAL REFLUX DISEASE
     Dosage: TWICE DAILY GENERIC
     Route: 065
     Dates: start: 202006
  32. DICLOFENAC SODIUM. [Concomitant]
     Active Substance: DICLOFENAC SODIUM
     Indication: ANALGESIC INTERVENTION SUPPORTIVE THERAPY
     Dosage: 100 MG
     Dates: start: 2016, end: 2017
  33. NAPROXEN. [Concomitant]
     Active Substance: NAPROXEN
     Indication: INFLAMMATION
     Dosage: 375 MG
     Dates: start: 2015
  34. ALPRAZOLAM. [Concomitant]
     Active Substance: ALPRAZOLAM
  35. VANCOMYCIN [Concomitant]
     Active Substance: VANCOMYCIN
  36. ONDANSETRON [Concomitant]
     Active Substance: ONDANSETRON
  37. NEXIUM [Suspect]
     Active Substance: ESOMEPRAZOLE MAGNESIUM
     Indication: GASTROOESOPHAGEAL REFLUX DISEASE
     Route: 048
     Dates: start: 2012
  38. OMEPRAZOLE. [Suspect]
     Active Substance: OMEPRAZOLE
     Indication: GASTROOESOPHAGEAL REFLUX DISEASE
     Dosage: GENERIC
     Route: 065
     Dates: start: 2018, end: 2020
  39. LOSARTAN. [Concomitant]
     Active Substance: LOSARTAN
     Indication: HYPERTENSION
     Dosage: 25 MG
     Dates: start: 2014
  40. INDOMETHACIN. [Concomitant]
     Active Substance: INDOMETHACIN
     Indication: INFLAMMATION
     Dosage: 25 MG
     Dates: start: 2016
  41. AMITRIPTYLINE [Concomitant]
     Active Substance: AMITRIPTYLINE
     Indication: NEURALGIA
     Dosage: 25 MG
     Dates: start: 2016, end: 2017
  42. FUROSEMIDE. [Concomitant]
     Active Substance: FUROSEMIDE
     Indication: DIURETIC THERAPY
     Dosage: 40 MG
     Dates: start: 2014, end: 2015
  43. ASPIRIN. [Concomitant]
     Active Substance: ASPIRIN
     Dates: start: 2020
  44. MYLANTA [Concomitant]
     Active Substance: ALUMINUM HYDROXIDE\DIMETHICONE\MAGNESIUM HYDROXIDE
     Dosage: ONCE A DAILY
     Dates: start: 2012
  45. TUMS [Concomitant]
     Active Substance: CALCIUM CARBONATE
     Dosage: ONCE A DAILY
     Dates: start: 1992, end: 2016
  46. OXYCODONE/ACETAMINOPHEN [Concomitant]
     Active Substance: ACETAMINOPHEN\OXYCODONE HYDROCHLORIDE
  47. ESTRADIOL. [Concomitant]
     Active Substance: ESTRADIOL
  48. CEPHALEXIN. [Concomitant]
     Active Substance: CEPHALEXIN
  49. NEXIUM [Suspect]
     Active Substance: ESOMEPRAZOLE MAGNESIUM
     Indication: GASTROOESOPHAGEAL REFLUX DISEASE
     Route: 048
     Dates: start: 2012, end: 2013
  50. NEXIUM [Suspect]
     Active Substance: ESOMEPRAZOLE MAGNESIUM
     Indication: GASTROOESOPHAGEAL REFLUX DISEASE
     Route: 048
     Dates: start: 2016
  51. ALLOPURINOL. [Concomitant]
     Active Substance: ALLOPURINOL
     Indication: BLOOD URIC ACID ABNORMAL
     Dosage: 100 MG
     Dates: start: 2016
  52. PRAVASTATIN. [Concomitant]
     Active Substance: PRAVASTATIN
     Indication: BLOOD CHOLESTEROL INCREASED
     Dosage: 80 MG
     Dates: start: 2014, end: 2018
  53. OXYCODONE [Concomitant]
     Active Substance: OXYCODONE
  54. CARISOPRODOL. [Concomitant]
     Active Substance: CARISOPRODOL
  55. HYDROXYZINE [Concomitant]
     Active Substance: HYDROXYZINE HYDROCHLORIDE
  56. ESTRACE [Concomitant]
     Active Substance: ESTRADIOL
  57. NEXIUM [Suspect]
     Active Substance: ESOMEPRAZOLE MAGNESIUM
     Indication: GASTROOESOPHAGEAL REFLUX DISEASE
     Dosage: GENERIC
     Route: 065
     Dates: start: 2016, end: 2020
  58. VITAMIN B12 [Concomitant]
     Active Substance: CYANOCOBALAMIN
     Indication: SUPPLEMENTATION THERAPY
     Dates: start: 202006
  59. RANITIDINE. [Concomitant]
     Active Substance: RANITIDINE
     Dosage: GENERIC
     Dates: start: 2016, end: 2018
  60. FLUCONAZOLE. [Concomitant]
     Active Substance: FLUCONAZOLE
  61. TRAZODONE [Concomitant]
     Active Substance: TRAZODONE HYDROCHLORIDE
  62. METRONIDAZOLE. [Concomitant]
     Active Substance: METRONIDAZOLE
  63. LEVOTHYROXINE. [Concomitant]
     Active Substance: LEVOTHYROXINE

REACTIONS (3)
  - Renal failure [Unknown]
  - Rebound acid hypersecretion [Unknown]
  - Adenocarcinoma gastric [Not Recovered/Not Resolved]
